FAERS Safety Report 4617760-7 (Version None)
Quarter: 2005Q1

REPORT INFORMATION
  Report Type: 
  Country: None (occurrence: None)
  Receive Date: 20050322
  Receipt Date: 20050309
  Transmission Date: 20050727
  Serious: No
  Sender: FDA-Public Use
  Company Number: 2005SE01529

PATIENT
  Sex: Male

DRUGS (1)
  1. NAROPIN [Suspect]
     Indication: PREGNANCY
     Dates: start: 20050301

REACTIONS (3)
  - DRUG EXPOSURE DURING PREGNANCY [None]
  - FLOPPY INFANT [None]
  - MEDICATION ERROR [None]
